FAERS Safety Report 6841940-3 (Version None)
Quarter: 2010Q3

REPORT INFORMATION
  Report Type: 
  Country: None (occurrence: None)
  Receive Date: 20100714
  Receipt Date: 20070917
  Transmission Date: 20110219
  Serious: No
  Sender: FDA-Public Use
  Company Number: US-PFIZER INC-2007059500

PATIENT
  Sex: Female
  Weight: 57.6 kg

DRUGS (11)
  1. CHANTIX [Suspect]
     Indication: SMOKING CESSATION THERAPY
     Route: 048
     Dates: start: 20070630, end: 20070703
  2. METFORMIN HCL [Concomitant]
  3. AMARYL [Concomitant]
  4. LANOXIN [Concomitant]
  5. ATENOLOL [Concomitant]
  6. DIOVANE [Concomitant]
  7. SYNTHROID [Concomitant]
  8. NEXIUM [Concomitant]
  9. LEVOXYL [Concomitant]
  10. ACETYLSALICYLIC ACID [Concomitant]
  11. OS-CAL [Concomitant]

REACTIONS (3)
  - PARAESTHESIA [None]
  - PARAESTHESIA ORAL [None]
  - TREMOR [None]
